FAERS Safety Report 20757503 (Version 1)
Quarter: 2022Q2

REPORT INFORMATION
  Report Type: Spontaneous
  Country: DE (occurrence: None)
  Receive Date: 20220427
  Receipt Date: 20220427
  Transmission Date: 20220721
  Serious: Yes (Hospitalization, Other)
  Sender: FDA-Public Use
  Company Number: 2022A155497

PATIENT
  Sex: Male

DRUGS (5)
  1. DAPAGLIFLOZIN [Suspect]
     Active Substance: DAPAGLIFLOZIN
     Indication: Cardiac failure
     Route: 048
  2. DAPAGLIFLOZIN [Suspect]
     Active Substance: DAPAGLIFLOZIN
     Indication: Nephropathy
     Route: 048
  3. TORSEMIDE [Concomitant]
     Active Substance: TORSEMIDE
  4. SPIRONOLACTONE [Concomitant]
     Active Substance: SPIRONOLACTONE
  5. XIPAMIDE [Concomitant]
     Active Substance: XIPAMIDE

REACTIONS (1)
  - Pulmonary oedema [Unknown]
